FAERS Safety Report 7356073-X (Version None)
Quarter: 2011Q1

REPORT INFORMATION
  Report Type: 
  Country: None (occurrence: None)
  Receive Date: 20110310
  Receipt Date: 20110310
  Transmission Date: 20110831
  Serious: Yes (Life-Threatening, Disabling)
  Sender: FDA-Public Use
  Company Number: None

PATIENT
  Sex: Female
  Weight: 59.4212 kg

DRUGS (2)
  1. WELLBUTRIN [Suspect]
     Indication: DEPRESSION
     Dosage: 100MG AT BEDTIME PO
     Route: 048
     Dates: start: 20090910, end: 20091001
  2. WELLBUTRIN [Suspect]
     Indication: DEPRESSION
     Dosage: 150MG EVERY DAY PO
     Route: 048
     Dates: start: 20090522, end: 20091001

REACTIONS (1)
  - CONVULSION [None]
